FAERS Safety Report 21873616 (Version 1)
Quarter: 2023Q1

REPORT INFORMATION
  Report Type: Spontaneous
  Country: US (occurrence: US)
  Receive Date: 20230117
  Receipt Date: 20230117
  Transmission Date: 20230418
  Serious: No
  Sender: FDA-Public Use
  Company Number: US-JUBILANT CADISTA PHARMACEUTICALS INC.-2022JUB00441

PATIENT
  Age: 92 Year
  Sex: Male

DRUGS (3)
  1. TERAZOSIN [Suspect]
     Active Substance: TERAZOSIN HYDROCHLORIDE
     Indication: Product used for unknown indication
  2. ENZALUTAMIDE [Suspect]
     Active Substance: ENZALUTAMIDE
     Indication: Prostate cancer metastatic
     Dosage: 160 MG, 1X/DAY
     Route: 048
     Dates: start: 20210817
  3. LUPRON [Concomitant]
     Active Substance: LEUPROLIDE ACETATE

REACTIONS (4)
  - Fall [Not Recovered/Not Resolved]
  - Chest injury [Not Recovered/Not Resolved]
  - Somnolence [Not Recovered/Not Resolved]
  - Dizziness postural [Not Recovered/Not Resolved]

NARRATIVE: CASE EVENT DATE: 20220827
